FAERS Safety Report 12281742 (Version 1)
Quarter: 2016Q2

REPORT INFORMATION
  Report Type: Spontaneous
  Country: US (occurrence: US)
  Receive Date: 20160419
  Receipt Date: 20160419
  Transmission Date: 20160815
  Serious: No
  Sender: FDA-Public Use
  Company Number: US-TEVA-641843USA

PATIENT
  Age: 38 Year
  Sex: Female

DRUGS (1)
  1. ZECUITY [Suspect]
     Active Substance: SUMATRIPTAN SUCCINATE
     Route: 062
     Dates: start: 20160304, end: 20160304

REACTIONS (4)
  - Application site pain [Unknown]
  - Device use error [Unknown]
  - Application site paraesthesia [Unknown]
  - Device leakage [Unknown]

NARRATIVE: CASE EVENT DATE: 20160304
